FAERS Safety Report 12491422 (Version 2)
Quarter: 2016Q3

REPORT INFORMATION
  Report Type: Report from Study
  Country: JP (occurrence: JP)
  Receive Date: 20160623
  Receipt Date: 20160704
  Transmission Date: 20161109
  Serious: Yes (Hospitalization)
  Sender: FDA-Public Use
  Company Number: JP-ROCHE-1777930

PATIENT
  Age: 69 Year
  Sex: Female
  Weight: 51.1 kg

DRUGS (16)
  1. PERTUZUMAB [Suspect]
     Active Substance: PERTUZUMAB
     Dosage: DATE OF MOST RECENT DOSE (420 MG) PRIOR TO SAE: 04/NOV/2015
     Route: 042
     Dates: start: 20141203
  2. TRASTUZUMAB [Suspect]
     Active Substance: TRASTUZUMAB
     Dosage: DATE OF MOST RECENT DOSE (295 MG) PRIOR TO SAE: 04/NOV/2015
     Route: 042
     Dates: start: 20141203
  3. CRESTOR [Concomitant]
     Active Substance: ROSUVASTATIN CALCIUM
     Indication: HYPERLIPIDAEMIA
     Route: 065
     Dates: start: 20070119
  4. BAYASPIRIN [Concomitant]
     Active Substance: ASPIRIN
     Indication: CEREBRAL INFARCTION
     Route: 065
     Dates: start: 20070324
  5. PROPETO [Concomitant]
     Indication: SKIN ULCER
     Route: 065
     Dates: start: 20140626
  6. 5-FLUOROURACIL [Suspect]
     Active Substance: FLUOROURACIL
     Indication: HER-2 POSITIVE BREAST CANCER
     Dosage: 500-600 MG/M2
     Route: 040
     Dates: start: 20140730
  7. DOCETAXEL. [Suspect]
     Active Substance: DOCETAXEL
     Indication: HER-2 POSITIVE BREAST CANCER
     Dosage: 100MG/M2 FOR 3 CYCLES OR 75 MG/M2 FOR 4 CYCLES OR 75 MG/M2 IN CYCLE 1 ESCALATING TO 100 MG/M2 IN SUB
     Route: 042
     Dates: start: 20141112
  8. CYCLOPHOSPHAMIDE. [Suspect]
     Active Substance: CYCLOPHOSPHAMIDE
     Indication: HER-2 POSITIVE BREAST CANCER
     Dosage: 500-600 MG/M2
     Route: 042
     Dates: start: 20140730
  9. CALBLOCK [Concomitant]
     Active Substance: AZELNIDIPINE
     Indication: HYPERTENSION
     Route: 065
     Dates: start: 20150804
  10. HIRUDOID (HEPARINOIDS) [Concomitant]
     Indication: DRY SKIN
     Route: 065
     Dates: start: 20141203, end: 20160430
  11. TRASTUZUMAB [Suspect]
     Active Substance: TRASTUZUMAB
     Indication: HER-2 POSITIVE BREAST CANCER
     Dosage: LOADING DOSE AS PER PROTOCOL (ONCE)
     Route: 042
     Dates: start: 20141112
  12. ANTEBATE [Concomitant]
     Active Substance: BETAMETHASONE DIPROPIONATE
     Indication: DERMATITIS
  13. PERTUZUMAB [Suspect]
     Active Substance: PERTUZUMAB
     Indication: HER-2 POSITIVE BREAST CANCER
     Dosage: LOADING DOSE AS PER PROTOCOL (ONCE)
     Route: 042
     Dates: start: 20141112
  14. EPIRUBICIN [Suspect]
     Active Substance: EPIRUBICIN
     Indication: HER-2 POSITIVE BREAST CANCER
     Dosage: 90-100 MG/M2
     Route: 042
     Dates: start: 20140730
  15. CONSTAN (JAPAN) [Concomitant]
     Indication: ANXIETY
     Route: 065
     Dates: start: 20090331
  16. METHADERM [Concomitant]
     Indication: STASIS DERMATITIS
     Route: 065
     Dates: start: 20150911

REACTIONS (1)
  - Uterine polyp [Recovered/Resolved]

NARRATIVE: CASE EVENT DATE: 20160523
